FAERS Safety Report 5267743-1 (Version None)
Quarter: 2007Q1

REPORT INFORMATION
  Report Type: 
  Country: None (occurrence: None)
  Receive Date: 20070316
  Receipt Date: 20070306
  Transmission Date: 20070707
  Serious: Yes (Hospitalization)
  Sender: FDA-Public Use
  Company Number: GB-PFIZER INC-2007015785

PATIENT
  Age: 46 Year
  Sex: Female
  Weight: 69.5 kg

DRUGS (3)
  1. CHAMPIX [Suspect]
     Route: 048
  2. PROZAC [Concomitant]
  3. DIAZEPAM [Concomitant]

REACTIONS (3)
  - CHEST PAIN [None]
  - PLEURITIC PAIN [None]
  - UPPER RESPIRATORY TRACT INFECTION [None]
